FAERS Safety Report 9509037 (Version 1)
Quarter: 2013Q1

REPORT INFORMATION
  Report Type: Spontaneous
  Country: US (occurrence: None)
  Receive Date: 20130305
  Receipt Date: 20130305
  Transmission Date: 20140127
  Serious: Yes (Hospitalization)
  Sender: FDA-Public Use
  Company Number: 163-21880-12022944

PATIENT
  Age: 84 Year
  Sex: Male

DRUGS (1)
  1. REVLIMID [Suspect]
     Indication: PLASMA CELL MYELOMA
     Dosage: 10/17/2011- ON HOLD?DAILY, DAYS 1-28 , EVERY 28
     Route: 048
     Dates: start: 20111017

REACTIONS (1)
  - Staphylococcal infection [None]
